FAERS Safety Report 17729059 (Version 1)
Quarter: 2020Q2

REPORT INFORMATION
  Report Type: Spontaneous
  Country: CH (occurrence: CH)
  Receive Date: 20200430
  Receipt Date: 20200430
  Transmission Date: 20200714
  Serious: Yes (Hospitalization)
  Sender: FDA-Public Use
  Company Number: CH-ROCHE-2590249

PATIENT
  Age: 0 Day
  Sex: Female
  Weight: 1.74 kg

DRUGS (3)
  1. DORMICUM [MIDAZOLAM] [Suspect]
     Active Substance: MIDAZOLAM HYDROCHLORIDE
     Indication: PRODUCT USED FOR UNKNOWN INDICATION
     Dosage: SOMMINISTRATI 15 MG DI DORMICUM ENDOVENA ALLA MADRE; DOSAGGIO RICEVUTO DALLA BAMBINA ATTRAVERSO L...
     Route: 064
     Dates: start: 20200122, end: 20200122
  2. PROPOFOL-LIPURO [Suspect]
     Active Substance: PROPOFOL
     Indication: PRODUCT USED FOR UNKNOWN INDICATION
     Dosage: SOMMINISTRATI 40 MG DI PROPOFOL-LIPURO ENDOVENA ALLA MADRE; DOSAGGIO RICEVUTO DALLA BAMBINA ATTRA...
     Route: 064
     Dates: start: 20200122, end: 20200122
  3. VALIUM [Suspect]
     Active Substance: DIAZEPAM
     Indication: PRODUCT USED FOR UNKNOWN INDICATION
     Dosage: SOMMINISTRATI 20 MG DI VALIUM ENDOVENA ALLA MADRE; DOSAGGIO RICEVUTO DALLA BAMBINA ATTRAVERSO LA ...
     Route: 064
     Dates: start: 20200122, end: 20200122

REACTIONS (6)
  - Bradycardia neonatal [Recovered/Resolved]
  - Hypoglycaemia neonatal [Recovered/Resolved]
  - Hypotonia neonatal [Recovered/Resolved]
  - Unresponsive to stimuli [Recovered/Resolved]
  - Neonatal hypotension [Recovered/Resolved]
  - Neonatal respiratory depression [Recovered/Resolved]

NARRATIVE: CASE EVENT DATE: 20200123
